FAERS Safety Report 7599225-6 (Version None)
Quarter: 2011Q3

REPORT INFORMATION
  Report Type: 
  Country: None (occurrence: None)
  Receive Date: 20110711
  Receipt Date: 20110624
  Transmission Date: 20111222
  Serious: Yes (Death, Hospitalization, Other)
  Sender: FDA-Public Use
  Company Number: US-BAYER-201029413NA

PATIENT
  Age: 27 Year
  Sex: Female
  Weight: 79.365 kg

DRUGS (5)
  1. ONE-A-DAY [VIT C,B12,D2,B3,B6,RETINOL,B2,B1 MONONITR] [Concomitant]
     Indication: PRODUCT USED FOR UNKNOWN INDICATION
  2. YAZ [Suspect]
     Indication: PRODUCT USED FOR UNKNOWN INDICATION
     Dosage: UNK
     Dates: start: 20080528, end: 20090330
  3. OMEPRAZOLE [Concomitant]
     Indication: ABDOMINAL PAIN UPPER
  4. ADVAIR DISKUS 100/50 [Concomitant]
     Indication: HYPERVENTILATION
  5. IRON TABLET [Concomitant]
     Indication: PRODUCT USED FOR UNKNOWN INDICATION

REACTIONS (18)
  - DEEP VEIN THROMBOSIS [None]
  - CHOLELITHIASIS [None]
  - DYSPNOEA [None]
  - PAIN IN EXTREMITY [None]
  - GALLBLADDER INJURY [None]
  - FATIGUE [None]
  - RESPIRATORY FAILURE [None]
  - PULMONARY EMBOLISM [None]
  - ABDOMINAL PAIN UPPER [None]
  - ACUTE RESPIRATORY FAILURE [None]
  - COUGH [None]
  - CHEST PAIN [None]
  - HYPERVENTILATION [None]
  - ASTHENIA [None]
  - ADENOCARCINOMA [None]
  - GAIT DISTURBANCE [None]
  - PULSELESS ELECTRICAL ACTIVITY [None]
  - UPPER RESPIRATORY TRACT INFECTION [None]
